FAERS Safety Report 18673500 (Version 2)
Quarter: 2021Q2

REPORT INFORMATION
  Report Type: Spontaneous
  Country: US (occurrence: US)
  Receive Date: 20201228
  Receipt Date: 20210507
  Transmission Date: 20210717
  Serious: No
  Sender: FDA-Public Use
  Company Number: US-PFIZER INC-2020512394

PATIENT
  Age: 51 Year
  Sex: Female
  Weight: 47.62 kg

DRUGS (2)
  1. IBRANCE [Suspect]
     Active Substance: PALBOCICLIB
     Indication: BREAST CANCER FEMALE
     Dosage: 100 MG, DAILY FOR 21 DAYS
     Route: 048
     Dates: start: 20201221
  2. IBRANCE [Suspect]
     Active Substance: PALBOCICLIB
     Dosage: 100 MG, DAILY FOR 21 DAYS
     Route: 048
     Dates: start: 20201221

REACTIONS (3)
  - Back disorder [Unknown]
  - Fluid retention [Unknown]
  - Fatigue [Unknown]
